FAERS Safety Report 6875852 (Version 2)
Quarter: 2020Q3

REPORT INFORMATION
  Report Type: Report from Study
  Country: IN (occurrence: IN)
  Receive Date: 20090108
  Receipt Date: 20090115
  Transmission Date: 20201105
  Serious: Yes (Hospitalization)
  Sender: FDA-Public Use
  Company Number: IN-WYE-H07535209

PATIENT
  Age: 64 Year
  Sex: Male
  Weight: 51 kg

DRUGS (4)
  1. RITUXIMAB. [Suspect]
     Active Substance: RITUXIMAB
     Indication: NON-HODGKIN^S LYMPHOMA
     Dosage: 596.25 MG (DAY ONE, 375MG/M^2, REPEAT EVERY 21 DAYS)
     Route: 042
     Dates: start: 20080709, end: 20081223
  2. FLUDARABINE [Suspect]
     Active Substance: FLUDARABINE PHOSPHATE
     Indication: NON-HODGKIN^S LYMPHOMA
     Dosage: 39.75 MG (DAY 2?4, 25 MG/M^2, REPEAT EVERY 21 DAYS)
     Route: 042
     Dates: start: 20080709, end: 20081226
  3. MITOXANTRONE HYDROCHLORIDE. [Suspect]
     Active Substance: MITOXANTRONE HYDROCHLORIDE
     Indication: NON-HODGKIN^S LYMPHOMA
     Dosage: 15.09 MG (DAY 2, 10 MG/M^2, REPEAT EVERY 21 DAYS)
     Route: 042
     Dates: start: 20080709, end: 20081224
  4. DEXAMETHASONE. [Suspect]
     Active Substance: DEXAMETHASONE
     Indication: NON-HODGKIN^S LYMPHOMA
     Dosage: 20 MG/DAY (DAY 1?5, REPEAT EVERY 21 DAYS)
     Route: 048
     Dates: start: 20080709, end: 20081227

REACTIONS (2)
  - Neutropenia [Recovered/Resolved]
  - Lower respiratory tract infection [Recovered/Resolved]

NARRATIVE: CASE EVENT DATE: 20081230
